FAERS Safety Report 20452441 (Version 4)
Quarter: 2022Q1

REPORT INFORMATION
  Report Type: Spontaneous
  Country: US (occurrence: US)
  Receive Date: 20220210
  Receipt Date: 20220311
  Transmission Date: 20220423
  Serious: No
  Sender: FDA-Public Use
  Company Number: US-BIOGEN-2022BI01084785

PATIENT
  Sex: Female

DRUGS (3)
  1. TYSABRI [Suspect]
     Active Substance: NATALIZUMAB
     Indication: Multiple sclerosis
     Route: 065
     Dates: start: 20140924, end: 20210820
  2. TYSABRI [Suspect]
     Active Substance: NATALIZUMAB
     Route: 065
     Dates: start: 20141028
  3. TYSABRI [Suspect]
     Active Substance: NATALIZUMAB
     Route: 065
     Dates: start: 202108, end: 202108

REACTIONS (6)
  - Inappropriate schedule of product administration [Unknown]
  - Gait inability [Unknown]
  - Hemiparesis [Unknown]
  - Gait disturbance [Unknown]
  - Balance disorder [Unknown]
  - Fall [Recovered/Resolved]
